FAERS Safety Report 7111465-9 (Version None)
Quarter: 2010Q4

REPORT INFORMATION
  Report Type: 
  Country: None (occurrence: None)
  Receive Date: 20101118
  Receipt Date: 20100701
  Transmission Date: 20110411
  Serious: No
  Sender: FDA-Public Use
  Company Number: US-PFIZER INC-2010065045

PATIENT
  Age: 11 Year
  Sex: Male
  Weight: 64.853 kg

DRUGS (3)
  1. ZYVOX [Suspect]
     Indication: MEDICAL DEVICE IMPLANTATION
     Dosage: 600 MG, EVERY 12 HOURS
     Route: 042
     Dates: start: 20100518, end: 20100527
  2. RIFAMPIN [Suspect]
     Dosage: 600 MG, EVERY 8 HOURS
     Route: 042
     Dates: start: 20100501, end: 20100527
  3. VANCOMYCIN [Concomitant]
     Indication: SHUNT INFECTION
     Dosage: 975 MG, EVERY 6 HOURS
     Route: 042
     Dates: start: 20100517, end: 20100501

REACTIONS (2)
  - SWELLING [None]
  - URTICARIA [None]
